FAERS Safety Report 10221091 (Version 4)
Quarter: 2014Q3

REPORT INFORMATION
  Report Type: Spontaneous
  Country: AU (occurrence: AU)
  Receive Date: 20140606
  Receipt Date: 20140718
  Transmission Date: 20150326
  Serious: Yes (Hospitalization, Other)
  Sender: FDA-Public Use
  Company Number: AU-ALEXION PHARMACEUTICALS INC.-A201402188

PATIENT

DRUGS (1)
  1. SOLIRIS [Suspect]
     Active Substance: ECULIZUMAB
     Indication: PAROXYSMAL NOCTURNAL HAEMOGLOBINURIA
     Dosage: 900 MG, Q2W
     Route: 042
     Dates: start: 201104

REACTIONS (14)
  - Extravascular haemolysis [Unknown]
  - Stress [Unknown]
  - Cardiac pacemaker insertion [Unknown]
  - Fatigue [Unknown]
  - Unevaluable event [Unknown]
  - Syncope [Unknown]
  - Blood lactate dehydrogenase increased [Unknown]
  - Infection [Unknown]
  - Gastrointestinal infection [Unknown]
  - Blood product transfusion dependent [Unknown]
  - Fall [Unknown]
  - Anaemia [Unknown]
  - Dizziness [Not Recovered/Not Resolved]
  - Balance disorder [Unknown]

NARRATIVE: CASE EVENT DATE: 20140512
